FAERS Safety Report 4913721-9 (Version None)
Quarter: 2006Q1

REPORT INFORMATION
  Report Type: 
  Country: None (occurrence: None)
  Receive Date: 20060216
  Receipt Date: 20060113
  Transmission Date: 20060701
  Serious: Yes (Hospitalization)
  Sender: FDA-Public Use
  Company Number: PHBS2006JP00986

PATIENT
  Age: 77 Year
  Sex: Female

DRUGS (7)
  1. DIOVAN [Suspect]
     Dosage: 20 MG/DAY
     Route: 048
     Dates: end: 20060203
  2. MUCOSTA [Concomitant]
     Dosage: 3 DF, UNK
     Route: 048
  3. ACETAMINOPHEN [Concomitant]
  4. SOLON [Concomitant]
  5. DASEN [Concomitant]
  6. CEFZON [Concomitant]
     Route: 048
     Dates: start: 20051213, end: 20051220
  7. LOXONIN [Concomitant]
     Dates: start: 20051213, end: 20051220

REACTIONS (5)
  - ABDOMINAL DISCOMFORT [None]
  - FRACTURE [None]
  - HAEMOGLOBIN DECREASED [None]
  - SALIVA DISCOLOURATION [None]
  - SURGERY [None]
